FAERS Safety Report 15360387 (Version 8)
Quarter: 2019Q2

REPORT INFORMATION
  Report Type: Spontaneous
  Country: US (occurrence: US)
  Receive Date: 20180907
  Receipt Date: 20190410
  Transmission Date: 20190711
  Serious: Yes (Other)
  Sender: FDA-Public Use
  Company Number: US-PFIZER INC-2018358790

PATIENT
  Age: 64 Year
  Sex: Female

DRUGS (2)
  1. SUTENT [Suspect]
     Active Substance: SUNITINIB MALATE
     Dosage: 50 MG, ALTERNATE DAY (WITH OR WITHOUT FOOD)
     Route: 048
     Dates: start: 20181010
  2. SUTENT [Suspect]
     Active Substance: SUNITINIB MALATE
     Indication: RENAL CANCER
     Dosage: 50 MG, CYCLIC [DAILY FOR 4 WEEKS ON AND 2 WEEK OFF]
     Route: 048
     Dates: start: 201807

REACTIONS (19)
  - Constipation [Recovered/Resolved]
  - Tongue discomfort [Unknown]
  - Hyperaesthesia [Recovered/Resolved]
  - Fatigue [Recovering/Resolving]
  - Platelet count decreased [Recovered/Resolved]
  - Oropharyngeal discomfort [Unknown]
  - Tongue dry [Unknown]
  - Faeces discoloured [Unknown]
  - Haematochezia [Recovered/Resolved]
  - Product use issue [Unknown]
  - Glossodynia [Unknown]
  - Axillary pain [Recovered/Resolved]
  - Dysgeusia [Unknown]
  - Asthenia [Recovering/Resolving]
  - Contusion [Unknown]
  - Diarrhoea [Unknown]
  - Cholelithiasis [Unknown]
  - Toothache [Unknown]
  - Dyspepsia [Unknown]

NARRATIVE: CASE EVENT DATE: 2018
